FAERS Safety Report 25329825 (Version 2)
Quarter: 2025Q2

REPORT INFORMATION
  Report Type: Report from Study
  Country: US (occurrence: US)
  Receive Date: 20250519
  Receipt Date: 20250528
  Transmission Date: 20250716
  Serious: Yes (Hospitalization, Other)
  Sender: ABBVIE
  Company Number: US-ABBVIE-6282678

PATIENT
  Age: 44 Year
  Sex: Male
  Weight: 81.646 kg

DRUGS (19)
  1. RINVOQ [Suspect]
     Active Substance: UPADACITINIB
     Indication: Rheumatoid arthritis
     Dosage: FORM STRENGTH: 15MG
     Route: 048
     Dates: start: 20210210, end: 202404
  2. RINVOQ [Suspect]
     Active Substance: UPADACITINIB
     Indication: Rheumatoid arthritis
     Dosage: FORM STRENGTH: 15MG
     Route: 048
     Dates: start: 202405
  3. MOBIC [Concomitant]
     Active Substance: MELOXICAM
     Indication: Rheumatoid arthritis
  4. CIALIS [Concomitant]
     Active Substance: TADALAFIL
     Indication: Skin ulcer
  5. HYGROTON [Concomitant]
     Active Substance: CHLORTHALIDONE
     Indication: Diuretic therapy
  6. XANAX [Concomitant]
     Active Substance: ALPRAZOLAM
     Indication: Insomnia
  7. NEURONTIN [Concomitant]
     Active Substance: GABAPENTIN
     Indication: Back pain
  8. PERCOCET [Concomitant]
     Active Substance: ACETAMINOPHEN\OXYCODONE HYDROCHLORIDE
     Indication: Rheumatoid arthritis
  9. FLEXERIL [Concomitant]
     Active Substance: CYCLOBENZAPRINE HYDROCHLORIDE
     Indication: Back pain
  10. CRESTOR [Concomitant]
     Active Substance: ROSUVASTATIN CALCIUM
     Indication: Blood cholesterol
  11. PLETAL [Concomitant]
     Active Substance: CILOSTAZOL
     Indication: Skin ulcer
  12. AVAPRO [Concomitant]
     Active Substance: IRBESARTAN
     Indication: Blood pressure measurement
  13. VITAMIN D [Concomitant]
     Active Substance: VITAMIN D NOS
     Indication: Vitamin supplementation
  14. PREDNISONE [Concomitant]
     Active Substance: PREDNISONE
     Indication: Rheumatoid arthritis
  15. PHENTERMINE [Concomitant]
     Active Substance: PHENTERMINE
     Indication: Product used for unknown indication
  16. CARDURA [Concomitant]
     Active Substance: DOXAZOSIN MESYLATE
     Indication: Thromboangiitis obliterans
  17. TAPAZOLE [Concomitant]
     Active Substance: METHIMAZOLE
     Indication: Thyroid disorder
  18. PROLIA [Concomitant]
     Active Substance: DENOSUMAB
     Indication: Calcium metabolism disorder
  19. PLAQUENIL [Concomitant]
     Active Substance: HYDROXYCHLOROQUINE SULFATE
     Indication: Rheumatoid arthritis

REACTIONS (11)
  - Spinal fracture [Recovering/Resolving]
  - Foot fracture [Not Recovered/Not Resolved]
  - Wrist fracture [Recovered/Resolved]
  - Syncope [Not Recovered/Not Resolved]
  - Osteoarthritis [Not Recovered/Not Resolved]
  - Hip fracture [Unknown]
  - Rib fracture [Recovering/Resolving]
  - Peripheral swelling [Not Recovered/Not Resolved]
  - Fall [Recovered/Resolved]
  - Foot fracture [Not Recovered/Not Resolved]
  - Skin discolouration [Not Recovered/Not Resolved]

NARRATIVE: CASE EVENT DATE: 20240101
